FAERS Safety Report 5017448-7 (Version None)
Quarter: 2006Q2

REPORT INFORMATION
  Report Type: 
  Country: None (occurrence: None)
  Receive Date: 20060601
  Receipt Date: 20060601
  Transmission Date: 20061013
  Serious: Yes (Other)
  Sender: FDA-Public Use
  Company Number: None

PATIENT
  Sex: Male
  Weight: 101.6057 kg

DRUGS (1)
  1. LIPITOR [Suspect]
     Indication: HYPERLIPIDAEMIA
     Dosage: 40MG ONE AT BEDTIME PO
     Route: 048
     Dates: start: 20050711, end: 20060501

REACTIONS (3)
  - ARTHRALGIA [None]
  - MUSCLE FATIGUE [None]
  - MYALGIA [None]
